FAERS Safety Report 26113290 (Version 1)
Quarter: 2025Q4

REPORT INFORMATION
  Report Type: Spontaneous
  Country: US (occurrence: US)
  Receive Date: 20251202
  Receipt Date: 20251202
  Transmission Date: 20260118
  Serious: No
  Sender: ASTELLAS
  Company Number: US-PFIZER INC-PV202500009438

PATIENT
  Age: 62 Year
  Sex: Male

DRUGS (1)
  1. PADCEV [Suspect]
     Active Substance: ENFORTUMAB VEDOTIN-EJFV
     Indication: Product used for unknown indication
     Dosage: DOSAGE FORM: POWDER FOR SOLUTION FOR INFUSION
     Route: 065

REACTIONS (3)
  - Pain [Unknown]
  - Nausea [Unknown]
  - Vomiting [Unknown]
